FAERS Safety Report 10314131 (Version 4)
Quarter: 2014Q3

REPORT INFORMATION
  Report Type: Spontaneous
  Country: BR (occurrence: BR)
  Receive Date: 20140718
  Receipt Date: 20140821
  Transmission Date: 20150326
  Serious: Yes (Other)
  Sender: FDA-Public Use
  Company Number: BR-PFIZER INC-2014144984

PATIENT
  Age: 72 Year
  Sex: Female
  Weight: 60 kg

DRUGS (3)
  1. LYRICA [Suspect]
     Active Substance: PREGABALIN
     Indication: PAIN IN EXTREMITY
     Dosage: 75 MG (ONE CAPSULE), DAILY (AT NIGHT)
     Route: 048
     Dates: start: 20140424
  2. LYRICA [Suspect]
     Active Substance: PREGABALIN
     Indication: PAIN
     Dosage: 1 TABLET (AS REPORTED) OF STRENGTH 75 MG PLUS HALF TABLET OF STRENGTH 75 MG, UNK
     Dates: start: 20140702
  3. LYRICA [Suspect]
     Active Substance: PREGABALIN
     Dosage: 75 MG, 2X/DAY
     Dates: start: 20140707

REACTIONS (9)
  - Dysstasia [Unknown]
  - Activities of daily living impaired [Unknown]
  - Intentional product misuse [Not Recovered/Not Resolved]
  - Gait disturbance [Unknown]
  - Pain [Unknown]
  - Musculoskeletal stiffness [Unknown]
  - Somnolence [Not Recovered/Not Resolved]
  - Abasia [Unknown]
  - Drug ineffective [Not Recovered/Not Resolved]

NARRATIVE: CASE EVENT DATE: 20140508
